FAERS Safety Report 8763740 (Version 1)
Quarter: 2012Q4

REPORT INFORMATION
  Report Type: Spontaneous
  Country: US (occurrence: None)
  Receive Date: 20120828
  Receipt Date: 20120828
  Transmission Date: 20130627
  Serious: Yes (Congenital Anomaly)
  Sender: FDA-Public Use
  Company Number: 2012MA010163

PATIENT
  Sex: Male

DRUGS (2)
  1. VINORELBINE [Suspect]
     Indication: DRUG EXPOSURE IN UTERO
     Route: 064
  2. TRASTUZUMAB [Suspect]
     Route: 064

REACTIONS (5)
  - Maternal drugs affecting foetus [None]
  - Oligohydramnios [None]
  - Foetal hypokinesia [None]
  - Foetal heart rate deceleration [None]
  - Premature baby [None]
